FAERS Safety Report 4642879-4 (Version None)
Quarter: 2005Q2

REPORT INFORMATION
  Report Type: 
  Country: None (occurrence: None)
  Receive Date: 20050420
  Receipt Date: 20050406
  Transmission Date: 20051028
  Serious: Yes (Other)
  Sender: FDA-Public Use
  Company Number: EWC050343070

PATIENT
  Age: 66 Year
  Sex: Female

DRUGS (2)
  1. ZYPREXA [Suspect]
     Indication: DEPRESSION
     Dosage: 5 MG
     Dates: start: 20030301, end: 20050201
  2. FLUOXETINE [Suspect]
     Dosage: 20 MG

REACTIONS (4)
  - BLOOD CHOLESTEROL INCREASED [None]
  - INCREASED APPETITE [None]
  - METABOLIC SYNDROME [None]
  - WEIGHT INCREASED [None]
